FAERS Safety Report 9174613 (Version 1)
Quarter: 2013Q1

REPORT INFORMATION
  Report Type: Spontaneous
  Country: US (occurrence: US)
  Receive Date: 20130320
  Receipt Date: 20130320
  Transmission Date: 20140127
  Serious: No
  Sender: FDA-Public Use
  Company Number: US-MYLANLABS-2013S1002354

PATIENT
  Age: 49 Year
  Sex: Female

DRUGS (3)
  1. ESTRADIOL TRANSDERMAL SYSTEM, USP [Suspect]
     Indication: HORMONE REPLACEMENT THERAPY
     Dosage: QWEEKLY
     Route: 062
     Dates: start: 2012
  2. CRESTOR [Concomitant]
     Indication: BLOOD CHOLESTEROL INCREASED
  3. VITAMIN D [Concomitant]
     Indication: SUPPLEMENTATION THERAPY

REACTIONS (3)
  - Application site haemorrhage [Recovered/Resolved]
  - Application site pain [Recovered/Resolved]
  - Application site burn [Not Recovered/Not Resolved]
